FAERS Safety Report 8612629-5 (Version None)
Quarter: 2012Q3

REPORT INFORMATION
  Report Type: 
  Country: None (occurrence: None)
  Receive Date: 20120822
  Receipt Date: 20110913
  Transmission Date: 20120928
  Serious: No
  Sender: FDA-Public Use
  Company Number: US-ASTRAZENECA-2011SE55204

PATIENT
  Age: 52 Year
  Sex: Male

DRUGS (4)
  1. SYMBICORT [Suspect]
     Dosage: 160/4.5 MCG TWO PUFFS TWO TIMES A DAY
     Route: 055
     Dates: start: 20110306
  2. BROVANA [Concomitant]
     Dosage: 15 MCG/2 ML INHALE 2 ML TWICE A DAY
     Route: 055
     Dates: start: 20110527
  3. SPIRIVA WITH HANDIHALER [Concomitant]
     Dosage: 18 MCG INHALE ONE CAPSULE EVERY DAY
     Route: 055
     Dates: start: 20110306
  4. VENTOLIN HFA [Concomitant]
     Dosage: 90 MCG INHALE ONE PUFF EVERY FOUR HOURS
     Route: 055
     Dates: start: 20110306

REACTIONS (3)
  - DYSPNOEA [None]
  - OBSTRUCTIVE AIRWAYS DISORDER [None]
  - PAIN IN EXTREMITY [None]
